FAERS Safety Report 8485741-1 (Version None)
Quarter: 2012Q2

REPORT INFORMATION
  Report Type: 
  Country: None (occurrence: None)
  Receive Date: 20120626
  Receipt Date: 20120618
  Transmission Date: 20120825
  Serious: Yes (Life-Threatening)
  Sender: FDA-Public Use
  Company Number: GER/UKI/12/0024711

PATIENT
  Age: 71 Year
  Sex: Male
  Weight: 62 kg

DRUGS (5)
  1. OLANZAPINE [Suspect]
     Indication: SCHIZOPHRENIA
     Dosage: 10 MG
     Dates: start: 20020101, end: 20120501
  2. OXAZEPAM [Concomitant]
  3. RAMIPRIL [Concomitant]
  4. BIMATOPROST (BIMATOPROST) [Concomitant]
  5. TEMAZEPAM [Concomitant]

REACTIONS (2)
  - DIABETES MELLITUS [None]
  - BREAST CANCER MALE [None]
